FAERS Safety Report 5596790-5 (Version None)
Quarter: 2008Q1

REPORT INFORMATION
  Report Type: 
  Country: None (occurrence: None)
  Receive Date: 20080118
  Receipt Date: 20080109
  Transmission Date: 20080703
  Serious: Yes (Death)
  Sender: FDA-Public Use
  Company Number: US-PFIZER INC-2008003268

PATIENT
  Sex: Female

DRUGS (4)
  1. ESTRING [Suspect]
     Indication: ATROPHIC VULVOVAGINITIS
     Route: 067
  2. NORVASC [Concomitant]
  3. NITROGLYCERIN [Concomitant]
  4. TOPROL-XL [Concomitant]

REACTIONS (1)
  - DEATH [None]
